FAERS Safety Report 6092800-X (Version None)
Quarter: 2009Q1

REPORT INFORMATION
  Report Type: 
  Country: None (occurrence: None)
  Receive Date: 20090225
  Receipt Date: 20090213
  Transmission Date: 20090719
  Serious: Yes (Other)
  Sender: FDA-Public Use
  Company Number: GR-ROCHE-616057

PATIENT
  Age: 16 Year
  Sex: Female

DRUGS (5)
  1. MYCOPHENOLATE MOFETIL [Suspect]
     Route: 065
  2. METHYLPREDNISOLONE 4MG TAB [Suspect]
     Dosage: ON DAY OF SURGERY
     Route: 042
  3. METHYLPREDNISOLONE 4MG TAB [Suspect]
     Dosage: ON FIRST POST-SURGICAL DAY
     Route: 042
  4. METHYLPREDNISOLONE 4MG TAB [Suspect]
     Dosage: FOR 2 WEEKS WITH GRADUAL REDUCTION
     Route: 048
  5. CYCLOSPORINE [Suspect]
     Route: 065

REACTIONS (2)
  - COMPLICATIONS OF TRANSPLANTED KIDNEY [None]
  - FOCAL SEGMENTAL GLOMERULOSCLEROSIS [None]
